FAERS Safety Report 21687187 (Version 1)
Quarter: 2022Q4

REPORT INFORMATION
  Report Type: Spontaneous
  Country: PT (occurrence: PT)
  Receive Date: 20221206
  Receipt Date: 20221206
  Transmission Date: 20230113
  Serious: Yes (Other)
  Sender: FDA-Public Use
  Company Number: None

PATIENT
  Age: 82 Year
  Sex: Male
  Weight: 79 kg

DRUGS (23)
  1. SPIRONOLACTONE [Suspect]
     Active Substance: SPIRONOLACTONE
     Indication: Cardiac failure
     Dosage: 1 CP AT FASTING
     Dates: end: 20220317
  2. FUROSEMIDE [Suspect]
     Active Substance: FUROSEMIDE
     Indication: Cardiac failure
     Dosage: 1 CP AT FASTING
     Dates: end: 20220420
  3. PATIROMER [Suspect]
     Active Substance: PATIROMER
     Indication: Hyperkalaemia
     Dosage: 16.8G / DAY (2 SACHETS OF 8.4G)
     Dates: start: 20220225, end: 20220420
  4. BISOPROLOL [Concomitant]
     Active Substance: BISOPROLOL
     Dosage: 1PC FOR BREAKFAST
  5. LERCANIDIPINE [Concomitant]
     Active Substance: LERCANIDIPINE
     Dosage: 1 CP AT DINNER
  6. DOLUTEGRAVIR [Concomitant]
     Active Substance: DOLUTEGRAVIR
     Dosage: 1 TAB AT BREAKFAST
  7. LANTUS [Concomitant]
     Active Substance: INSULIN GLARGINE
     Dosage: 30 UNITS ON AN EMPTY STOMACH
  8. SACUBITRIL\VALSARTAN [Concomitant]
     Active Substance: SACUBITRIL\VALSARTAN
     Dosage: 1CP FOR BREAKFAST + 1CP FOR DINNER, DOSE 1
  9. LAMIVUDINE [Concomitant]
     Active Substance: LAMIVUDINE
     Dosage: 1 COMP FOR BREAKFAST
  10. HUMALOG [Concomitant]
     Active Substance: INSULIN LISPRO
     Dosage: ACCORDING TO CAPILLARY BLOOD GLUCOSE, IN CARTRIDGE
  11. ALLOPURINOL [Concomitant]
     Active Substance: ALLOPURINOL
     Dosage: HALF TAB AT BREAKFAST
  12. CANAGLIFLOZIN [Concomitant]
     Active Substance: CANAGLIFLOZIN
     Dosage: 1 CP AT BREAKFAST
  13. TRAZODONE HYDROCHLORIDE [Concomitant]
     Active Substance: TRAZODONE HYDROCHLORIDE
     Dosage: 1 CP BEFORE BEDTIME
  14. OMEPRAZOLE [Concomitant]
     Active Substance: OMEPRAZOLE
     Dosage: 1CP AT FASTING
  15. PRAVASTATIN [Concomitant]
     Active Substance: PRAVASTATIN
     Dosage: 1 CP AT DINNER
  16. CALCIUM CARBONATE [Concomitant]
     Active Substance: CALCIUM CARBONATE
     Dosage: 1 CP FOR BREAKFAST
  17. CALCIUM POLYSTYRENE SULFONATE [Concomitant]
     Active Substance: CALCIUM POLYSTYRENE SULFONATE
     Dosage: 1 MEASURING SPOON 2 X DAY, HAVING INCREASED THE DOSE ON 09-5-2022 TO 1?MEASURING SPOON 3X DAY
  18. TROMALYT [Concomitant]
     Active Substance: ASPIRIN
     Dosage: 1 CP AT BREAKFAST, MODIFIED RELEASE CAPSULE, 150 MG
  19. PATIROMER [Suspect]
     Active Substance: PATIROMER
     Indication: Hyperkalaemia
     Dosage: 25.2G / DAY (3 SACHETS OF 8.4G)
     Dates: start: 20201203, end: 20220225
  20. LANTUS [Concomitant]
     Active Substance: INSULIN GLARGINE
     Dosage: 12 UNITS AT BEDTIME
  21. SPIRONOLACTONE [Suspect]
     Active Substance: SPIRONOLACTONE
     Indication: Cardiac failure
     Dosage: 1 CP AT FASTING
     Dates: start: 20220509
  22. SPIRONOLACTONE [Suspect]
     Active Substance: SPIRONOLACTONE
     Indication: Cardiac failure
     Dosage: 1 CP AT FASTING
     Dates: start: 20220317, end: 20220420
  23. FUROSEMIDE [Suspect]
     Active Substance: FUROSEMIDE
     Indication: Cardiac failure
     Dosage: 1 CP AT FASTING
     Dates: start: 20220509

REACTIONS (3)
  - Hyperkalaemia [Unknown]
  - Acute kidney injury [Not Recovered/Not Resolved]
  - Metabolic acidosis [Recovered/Resolved]

NARRATIVE: CASE EVENT DATE: 20220225
